FAERS Safety Report 8831082 (Version 1)
Quarter: 2012Q4

REPORT INFORMATION
  Report Type: 
  Country: US (occurrence: US)
  Receive Date: 20121009
  Receipt Date: 20121009
  Transmission Date: 20130627
  Serious: Yes (Hospitalization, Other)
  Sender: FDA-Public Use
  Company Number: PHEH2012US018043

PATIENT
  Age: 41 Year
  Sex: Female

DRUGS (1)
  1. AFINITOR [Suspect]
     Indication: TUBEROUS SCLEROSIS
     Dosage: 10 mg, QD
     Route: 048
     Dates: start: 20120801, end: 20120910

REACTIONS (6)
  - Wound infection [Unknown]
  - Impaired healing [Unknown]
  - Injection site haemorrhage [Unknown]
  - Bloody discharge [Unknown]
  - Oedema peripheral [Unknown]
  - Pain in extremity [Unknown]
